FAERS Safety Report 5088996-9 (Version None)
Quarter: 2006Q3

REPORT INFORMATION
  Report Type: 
  Country: None (occurrence: None)
  Receive Date: 20060825
  Receipt Date: 20060822
  Transmission Date: 20061208
  Serious: Yes (Hospitalization, Disabling)
  Sender: FDA-Public Use
  Company Number: PHRM2006FR02367

PATIENT
  Sex: Female
  Weight: 59 kg

DRUGS (4)
  1. ZOMETA [Suspect]
     Indication: METASTASES TO BONE
     Dosage: 4 MG, QMO
     Route: 042
     Dates: end: 20030301
  2. THALIDOMIDE [Concomitant]
  3. DEXAMETHASONE [Concomitant]
  4. NEORECORMON [Concomitant]

REACTIONS (5)
  - ABSCESS [None]
  - CHRONIC SINUSITIS [None]
  - MAXILLOFACIAL OPERATION [None]
  - MOUTH ULCERATION [None]
  - OSTEONECROSIS [None]
